FAERS Safety Report 8482723-0 (Version None)
Quarter: 2012Q3

REPORT INFORMATION
  Report Type: 
  Country: None (occurrence: None)
  Receive Date: 20120702
  Receipt Date: 20120625
  Transmission Date: 20120928
  Serious: Yes (Hospitalization)
  Sender: FDA-Public Use
  Company Number: US-JNJFOC-20120610585

PATIENT
  Sex: Male
  Weight: 24.7 kg

DRUGS (10)
  1. METHOTREXATE [Concomitant]
  2. FOLIC ACID [Concomitant]
  3. ZOSYN [Concomitant]
  4. REMICADE [Suspect]
     Indication: CROHN'S DISEASE
     Route: 042
     Dates: start: 20070101, end: 20110620
  5. PREDNISONE [Concomitant]
  6. IMODIUM [Concomitant]
  7. HUMIRA [Concomitant]
     Dates: start: 20110705
  8. ANTIBIOTICS [Concomitant]
     Indication: INFLAMMATORY BOWEL DISEASE
  9. BUDESONIDE [Concomitant]
  10. URSODIOL [Concomitant]

REACTIONS (2)
  - DEHYDRATION [None]
  - CROHN'S DISEASE [None]
